FAERS Safety Report 7448768-4 (Version None)
Quarter: 2011Q2

REPORT INFORMATION
  Report Type: 
  Country: None (occurrence: None)
  Receive Date: 20110429
  Receipt Date: 20100730
  Transmission Date: 20111010
  Serious: No
  Sender: FDA-Public Use
  Company Number: US-ASTRAZENECA-2010SE35763

PATIENT
  Age: 85 Year
  Sex: Female

DRUGS (2)
  1. OMEPRAZOLE [Suspect]
     Route: 048
  2. NEXIUM [Suspect]
     Indication: DYSPEPSIA
     Route: 048

REACTIONS (2)
  - CONSTIPATION [None]
  - DYSPEPSIA [None]
